FAERS Safety Report 6614462-2 (Version None)
Quarter: 2010Q1

REPORT INFORMATION
  Report Type: 
  Country: None (occurrence: None)
  Receive Date: 20100304
  Receipt Date: 20100304
  Transmission Date: 20100710
  Serious: Yes (Life-Threatening)
  Sender: FDA-Public Use
  Company Number: None

PATIENT
  Age: 31 Year
  Sex: Female
  Weight: 58.9676 kg

DRUGS (1)
  1. YAZ [Suspect]
     Indication: ACNE
     Dosage: 1 PILL DAILY PO
     Route: 048
     Dates: start: 20070303, end: 20100114

REACTIONS (7)
  - ABNORMAL BEHAVIOUR [None]
  - DEPRESSED MOOD [None]
  - DEPRESSION [None]
  - FAMILY STRESS [None]
  - OVERDOSE [None]
  - STRESS [None]
  - SUICIDE ATTEMPT [None]
